FAERS Safety Report 4473351-2 (Version None)
Quarter: 2004Q4

REPORT INFORMATION
  Report Type: 
  Country: None (occurrence: None)
  Receive Date: 20041008
  Receipt Date: 20040922
  Transmission Date: 20050328
  Serious: Yes (Other)
  Sender: FDA-Public Use
  Company Number: M2004-1451

PATIENT
  Age: 12 Year
  Sex: Male

DRUGS (1)
  1. PENICILLIN G SODIUM, UNKNOWN MANUFACTURER [Suspect]
     Indication: GLOMERULONEPHRITIS
     Dosage: 8 MILLION IU

REACTIONS (3)
  - BACK PAIN [None]
  - DIZZINESS [None]
  - PHARYNGITIS [None]
